FAERS Safety Report 24280175 (Version 2)
Quarter: 2024Q3

REPORT INFORMATION
  Report Type: Report from Study
  Country: BR (occurrence: BR)
  Receive Date: 20240904
  Receipt Date: 20240909
  Transmission Date: 20241016
  Serious: Yes (Hospitalization, Other)
  Sender: TAKEDA
  Company Number: BR-TAKEDA-BR201928824

PATIENT
  Age: 38 Year
  Sex: Male
  Weight: 94 kg

DRUGS (8)
  1. HEMO-8R [Suspect]
     Active Substance: ANTIHEMOPHILIC FACTOR, HUMAN RECOMBINANT
     Indication: Factor VIII deficiency
     Dosage: UNK UNK, 2/WEEK
     Route: 050
     Dates: start: 198608
  2. HEMO-8R [Suspect]
     Active Substance: ANTIHEMOPHILIC FACTOR, HUMAN RECOMBINANT
     Dosage: 2500 INTERNATIONAL UNIT, 3/WEEK
     Route: 042
  3. HEMO-8R [Suspect]
     Active Substance: ANTIHEMOPHILIC FACTOR, HUMAN RECOMBINANT
     Dosage: 2500 INTERNATIONAL UNIT, 3/WEEK
     Route: 042
  4. ALPRAZOLAM [Concomitant]
     Active Substance: ALPRAZOLAM
     Indication: Panic disorder
  5. MORPHINE [Concomitant]
     Active Substance: MORPHINE
     Indication: Arthralgia
  6. MORPHINE SULFATE [Concomitant]
     Active Substance: MORPHINE SULFATE
     Route: 065
  7. OXYCODONE [Concomitant]
     Active Substance: OXYCODONE
     Route: 065
  8. VITAMINS [Concomitant]
     Active Substance: VITAMINS

REACTIONS (7)
  - Haemorrhage [Unknown]
  - Dengue haemorrhagic fever [Recovered/Resolved]
  - Skin abrasion [Unknown]
  - Haemarthrosis [Unknown]
  - Extra dose administered [Unknown]
  - Osteoarthritis [Not Recovered/Not Resolved]
  - Fall [Recovering/Resolving]

NARRATIVE: CASE EVENT DATE: 20240401
